FAERS Safety Report 19704761 (Version 1)
Quarter: 2021Q3

REPORT INFORMATION
  Report Type: Spontaneous
  Country: US (occurrence: US)
  Receive Date: 20210816
  Receipt Date: 20210816
  Transmission Date: 20211014
  Serious: Yes (Hospitalization)
  Sender: FDA-Public Use
  Company Number: None

PATIENT
  Age: 48 Year
  Sex: Male

DRUGS (2)
  1. NONE LISTED [Concomitant]
  2. NEUPOGEN [Suspect]
     Active Substance: FILGRASTIM
     Indication: HAIRY CELL LEUKAEMIA
     Dosage: ?          OTHER FREQUENCY:DAILY;?
     Route: 058
     Dates: start: 20210625

REACTIONS (1)
  - Chemotherapy [None]
